FAERS Safety Report 11649618 (Version 1)
Quarter: 2015Q4

REPORT INFORMATION
  Report Type: Spontaneous
  Country: US (occurrence: US)
  Receive Date: 20151021
  Receipt Date: 20151021
  Transmission Date: 20160304
  Serious: Yes (Hospitalization)
  Sender: FDA-Public Use
  Company Number: US-PROCTER+GAMBLE TECHNICAL CENTRES LTD-CIO15020179

PATIENT
  Age: 76 Year
  Sex: Female

DRUGS (7)
  1. UNSPECIFIED EYE MEDICINE [Concomitant]
  2. METAMUCIL THERAPY FOR REGULARITY [Suspect]
     Active Substance: PSYLLIUM HUSK
     Dosage: 1 TBSP, 1 /DAY
     Route: 048
     Dates: end: 20150323
  3. METAMUCIL THERAPY FOR REGULARITY [Suspect]
     Active Substance: PSYLLIUM HUSK
     Dosage: UNKNOWN DOSE AND FREQUENCY
     Route: 048
     Dates: start: 2015, end: 2015
  4. SUGAR PILL [Concomitant]
     Dosage: UNKNOWN
  5. CARDIOVASCULAR SYSTEM DRUGS [Concomitant]
     Active Substance: UNSPECIFIED INGREDIENT
     Dosage: UNKNOWN
  6. INSULIN [Concomitant]
     Active Substance: INSULIN NOS
     Dosage: UNKNOWN
  7. THYROID PREPARATIONS [Concomitant]
     Active Substance: UNSPECIFIED INGREDIENT
     Dosage: UNKNOWN

REACTIONS (14)
  - Abdominal discomfort [Not Recovered/Not Resolved]
  - Vomiting [Recovered/Resolved]
  - Drug ineffective [Unknown]
  - Gait disturbance [Unknown]
  - Asthenia [Not Recovered/Not Resolved]
  - Abdominal pain upper [Not Recovered/Not Resolved]
  - Dyspepsia [Not Recovered/Not Resolved]
  - Nausea [Not Recovered/Not Resolved]
  - Malaise [Not Recovered/Not Resolved]
  - Dizziness [Not Recovered/Not Resolved]
  - Gastrooesophageal reflux disease [Unknown]
  - Defaecation urgency [Not Recovered/Not Resolved]
  - Incorrect dose administered [Unknown]
  - Constipation [Not Recovered/Not Resolved]

NARRATIVE: CASE EVENT DATE: 201503
